FAERS Safety Report 12641148 (Version 1)
Quarter: 2016Q3

REPORT INFORMATION
  Report Type: Report from Study
  Country: CA (occurrence: CA)
  Receive Date: 20160810
  Receipt Date: 20160810
  Transmission Date: 20161109
  Serious: Yes (Death, Other)
  Sender: FDA-Public Use
  Company Number: PHHY2014CA132014

PATIENT
  Age: 62 Year
  Sex: Female

DRUGS (8)
  1. VENTOLIN [Concomitant]
     Active Substance: ALBUTEROL SULFATE
     Indication: PRODUCT USED FOR UNKNOWN INDICATION
     Dosage: 100 UG, UNK
     Route: 065
  2. ZITHROMAX [Concomitant]
     Active Substance: AZITHROMYCIN DIHYDRATE
     Indication: PRODUCT USED FOR UNKNOWN INDICATION
     Route: 065
  3. XOLAIR [Suspect]
     Active Substance: OMALIZUMAB
     Dosage: UNK
     Route: 058
     Dates: start: 20150224
  4. SEEBRI BREEZHALER [Suspect]
     Active Substance: GLYCOPYRROLATE
     Indication: PRODUCT USED FOR UNKNOWN INDICATION
     Dosage: 50 MG, UNK
     Route: 055
  5. SYMBICORT [Concomitant]
     Active Substance: BUDESONIDE\FORMOTEROL FUMARATE DIHYDRATE
     Indication: PRODUCT USED FOR UNKNOWN INDICATION
     Dosage: 200 OT, UNK
     Route: 065
  6. XOLAIR [Suspect]
     Active Substance: OMALIZUMAB
     Indication: ASTHMA
     Dosage: 375 MG, BIW
     Route: 058
     Dates: start: 20141006
  7. XOLAIR [Suspect]
     Active Substance: OMALIZUMAB
     Dosage: UNK
     Route: 058
     Dates: start: 20141118
  8. XOLAIR [Suspect]
     Active Substance: OMALIZUMAB
     Dosage: UNK
     Route: 058
     Dates: start: 20150714, end: 20150714

REACTIONS (40)
  - Death [Fatal]
  - Dysphonia [Recovering/Resolving]
  - Contusion [Unknown]
  - Limb discomfort [Unknown]
  - Chest pain [Unknown]
  - Drug ineffective [Unknown]
  - Respiratory rate increased [Unknown]
  - Fatigue [Unknown]
  - Pain [Unknown]
  - Rales [Unknown]
  - Cerebrovascular accident [Unknown]
  - Infection [Unknown]
  - Rhinorrhoea [Unknown]
  - Growing pains [Unknown]
  - Gait disturbance [Unknown]
  - Feeling hot [Unknown]
  - Malaise [Unknown]
  - Amyotrophic lateral sclerosis [Unknown]
  - Tooth infection [Unknown]
  - Condition aggravated [Unknown]
  - Pallor [Unknown]
  - Nasal discharge discolouration [Unknown]
  - Palpitations [Unknown]
  - Hypoaesthesia [Recovering/Resolving]
  - Lung infection [Unknown]
  - Speech disorder [Unknown]
  - Memory impairment [Unknown]
  - Balance disorder [Unknown]
  - Back pain [Unknown]
  - Poor quality sleep [Unknown]
  - Wheezing [Unknown]
  - Dyspnoea [Unknown]
  - Pain in extremity [Unknown]
  - Arthralgia [Unknown]
  - Fall [Unknown]
  - Sciatic nerve neuropathy [Unknown]
  - Muscular weakness [Unknown]
  - Muscle spasms [Unknown]
  - Asthenia [Unknown]
  - Nasopharyngitis [Unknown]

NARRATIVE: CASE EVENT DATE: 2014
